FAERS Safety Report 9550050 (Version 1)
Quarter: 2013Q3

REPORT INFORMATION
  Report Type: Spontaneous
  Country: CH (occurrence: CH)
  Receive Date: 20130924
  Receipt Date: 20130924
  Transmission Date: 20140515
  Serious: Yes (Life-Threatening, Other)
  Sender: FDA-Public Use
  Company Number: PHHY2013CH104985

PATIENT
  Age: 52 Year
  Sex: Female

DRUGS (2)
  1. MYCOPHENOLATE MOFETIL [Suspect]
     Dosage: 180 MG, BID
  2. SIROLIMUS [Suspect]
     Indication: MYOCARDITIS

REACTIONS (15)
  - Hypoalbuminaemia [Recovered/Resolved]
  - Toxicity to various agents [Recovered/Resolved]
  - Hypophosphataemia [Recovered/Resolved]
  - Colitis [Recovered/Resolved]
  - Cytomegalovirus infection [Recovered/Resolved]
  - Diarrhoea haemorrhagic [Recovered/Resolved]
  - Pyrexia [Recovered/Resolved]
  - Weight decreased [Recovered/Resolved]
  - Asthenia [Recovered/Resolved]
  - Underweight [Recovered/Resolved]
  - Hypokalaemia [Recovered/Resolved]
  - Colitis erosive [Recovered/Resolved]
  - Large intestinal ulcer [Recovered/Resolved]
  - Epstein-Barr virus infection [Recovered/Resolved]
  - Diarrhoea [Recovered/Resolved]
